FAERS Safety Report 24886519 (Version 1)
Quarter: 2025Q1

REPORT INFORMATION
  Report Type: Spontaneous
  Country: US (occurrence: US)
  Receive Date: 20250126
  Receipt Date: 20250126
  Transmission Date: 20250409
  Serious: Yes (Other)
  Sender: DR REDDYS
  Company Number: US-DRL-USA-USA/2025/01/001057

PATIENT
  Sex: Male

DRUGS (4)
  1. ALBENDAZOLE [Suspect]
     Active Substance: ALBENDAZOLE
     Indication: Microsporidia infection
     Route: 048
  2. ALBENDAZOLE [Suspect]
     Active Substance: ALBENDAZOLE
     Indication: Keratitis fungal
  3. FUMAGILLIN [Concomitant]
     Active Substance: FUMAGILLIN
     Indication: Microsporidia infection
     Route: 061
  4. FUMAGILLIN [Concomitant]
     Active Substance: FUMAGILLIN
     Indication: Keratitis fungal

REACTIONS (1)
  - Drug ineffective for unapproved indication [Unknown]
